FAERS Safety Report 22618705 (Version 2)
Quarter: 2024Q3

REPORT INFORMATION
  Report Type: Spontaneous
  Country: US (occurrence: US)
  Receive Date: 20230620
  Receipt Date: 20240711
  Transmission Date: 20241017
  Serious: No
  Sender: PIERRE FABRE MEDICAMENT
  Company Number: US-PFM-2023-00156

PATIENT
  Sex: Female
  Weight: 8.34 kg

DRUGS (2)
  1. HEMANGEOL [Suspect]
     Active Substance: PROPRANOLOL HYDROCHLORIDE
     Indication: Haemangioma
     Dosage: 1.6 ML, BID (2/DAY)
     Route: 048
     Dates: start: 20230106
  2. HEMANGEOL [Suspect]
     Active Substance: PROPRANOLOL HYDROCHLORIDE
     Dosage: 2.8 ML
     Route: 065

REACTIONS (6)
  - Grunting [Unknown]
  - Gastrooesophageal reflux disease [Unknown]
  - Conjunctivitis [Unknown]
  - Ear infection [Unknown]
  - Nasopharyngitis [Unknown]
  - Infantile spitting up [Unknown]
